FAERS Safety Report 10798587 (Version 1)
Quarter: 2015Q1

REPORT INFORMATION
  Report Type: Spontaneous
  Country: US (occurrence: US)
  Receive Date: 20150216
  Receipt Date: 20150216
  Transmission Date: 20150721
  Serious: Yes (Other)
  Sender: FDA-Public Use
  Company Number: US-GLAXOSMITHKLINE-US2015020241

PATIENT
  Sex: Female

DRUGS (4)
  1. ADVAIR DISKUS [Suspect]
     Active Substance: FLUTICASONE PROPIONATE\SALMETEROL XINAFOATE
     Indication: CHRONIC OBSTRUCTIVE PULMONARY DISEASE
     Dosage: UNK
  2. AMIODARONE [Concomitant]
     Active Substance: AMIODARONE
  3. CARVEDILOL. [Concomitant]
     Active Substance: CARVEDILOL
  4. PRESERVISION [Concomitant]

REACTIONS (2)
  - Blindness [Not Recovered/Not Resolved]
  - Macular degeneration [Not Recovered/Not Resolved]
